FAERS Safety Report 5476984-X (Version None)
Quarter: 2007Q4

REPORT INFORMATION
  Report Type: 
  Country: None (occurrence: None)
  Receive Date: 20071003
  Receipt Date: 20071003
  Transmission Date: 20080405
  Serious: Yes (Hospitalization)
  Sender: FDA-Public Use
  Company Number: None

PATIENT
  Sex: Male
  Weight: 99 kg

DRUGS (1)
  1. TEMOZOLOMIDE [Suspect]
     Dosage: 3465 MG

REACTIONS (5)
  - CONFUSIONAL STATE [None]
  - DISEASE PROGRESSION [None]
  - GAIT DISTURBANCE [None]
  - HEMIPARESIS [None]
  - VISION BLURRED [None]
